FAERS Safety Report 9727193 (Version 1)
Quarter: 2013Q4

REPORT INFORMATION
  Report Type: Spontaneous
  Country: RO (occurrence: RO)
  Receive Date: 20131203
  Receipt Date: 20131203
  Transmission Date: 20140711
  Serious: Yes (Other)
  Sender: FDA-Public Use
  Company Number: RO-ACTAVIS-2013-21574

PATIENT
  Age: 83 Year
  Sex: Male

DRUGS (18)
  1. MEROPENEM (UNKNOWN) [Suspect]
     Indication: ENCEPHALITIS
     Dosage: 6 G, DAILY
     Route: 065
     Dates: start: 20120924, end: 20121003
  2. MEROPENEM (UNKNOWN) [Suspect]
     Dosage: 6 G, DAILY
     Route: 065
     Dates: start: 20120911, end: 20120914
  3. VANCOMYCIN (UNKNOWN) [Suspect]
     Indication: ENCEPHALITIS
     Dosage: 2 G, DAILY
     Route: 065
     Dates: start: 20120911, end: 20120914
  4. CEFTAZIDIME (UNKNOWN) [Suspect]
     Indication: MENINGOENCEPHALITIS BACTERIAL
     Dosage: 6 G, DAILY
     Route: 065
     Dates: start: 20120914, end: 20120924
  5. CEFTRIAXONE (UNKNOWN) [Suspect]
     Indication: PRODUCT USED FOR UNKNOWN INDICATION
     Dosage: 4 G, DAILY
     Route: 065
  6. ISONIAZID [Suspect]
     Indication: TUBERCULOSIS
     Dosage: UNK
     Route: 065
  7. ISONIAZID [Suspect]
     Indication: ENCEPHALITIS
  8. RIFAMPICIN (UNKNOWN) [Suspect]
     Indication: TUBERCULOSIS
     Dosage: UNK
     Route: 065
     Dates: start: 20120927, end: 20121109
  9. RIFAMPICIN (UNKNOWN) [Suspect]
     Indication: ENCEPHALITIS
  10. PYRAZINAMIDE [Suspect]
     Indication: TUBERCULOSIS
     Dosage: UNK
     Route: 065
  11. PYRAZINAMIDE [Suspect]
     Indication: ENCEPHALITIS
  12. ETHAMBUTOL [Suspect]
     Indication: TUBERCULOSIS
     Dosage: UNK
     Route: 065
  13. ETHAMBUTOL [Suspect]
     Indication: ENCEPHALITIS
  14. STREPTOMYCIN [Suspect]
     Indication: TUBERCULOSIS
     Dosage: UNK
     Route: 065
  15. STREPTOMYCIN [Suspect]
     Indication: ENCEPHALITIS
  16. DEXAMETHASONE [Concomitant]
     Indication: ENCEPHALITIS
     Dosage: 16 MG, DAILY
     Route: 065
  17. DEXAMETHASONE [Concomitant]
     Dosage: 16 MG, DAILY
     Route: 065
     Dates: start: 20120911, end: 20120914
  18. CARBIDOPA/LEVODOPA [Concomitant]
     Indication: PARKINSON^S DISEASE
     Dosage: UNK
     Route: 065

REACTIONS (1)
  - Oropharyngeal candidiasis [Unknown]
